FAERS Safety Report 7488285-9 (Version None)
Quarter: 2011Q2

REPORT INFORMATION
  Report Type: 
  Country: None (occurrence: None)
  Receive Date: 20110511
  Receipt Date: 20110427
  Transmission Date: 20111010
  Serious: Yes (Hospitalization)
  Sender: FDA-Public Use
  Company Number: CLO-11-04

PATIENT
  Age: 3 Month
  Sex: Male

DRUGS (1)
  1. CLONIDINE [Suspect]
     Dosage: 15UG/2X/DAY

REACTIONS (5)
  - DRUG WITHDRAWAL SYNDROME [None]
  - TACHYCARDIA [None]
  - TREMOR [None]
  - HYPERTENSION [None]
  - IRRITABILITY [None]
